FAERS Safety Report 4491821-8 (Version None)
Quarter: 2004Q4

REPORT INFORMATION
  Report Type: 
  Country: None (occurrence: None)
  Receive Date: 20041028
  Receipt Date: 20041028
  Transmission Date: 20050328
  Serious: Yes (Hospitalization, Disabling)
  Sender: FDA-Public Use
  Company Number: None

PATIENT
  Age: 42 Year
  Sex: Male
  Weight: 102.0593 kg

DRUGS (5)
  1. CIPRO [Suspect]
     Indication: PROSTATITIS
     Dosage: 250 MG   TWICE A DAY   ORAL
     Route: 048
     Dates: start: 20030630, end: 20030713
  2. LEVAQUIN [Suspect]
     Indication: PROSTATITIS
     Dosage: 500MG   ONCE A DAY   ORAL
     Route: 048
     Dates: start: 20030715, end: 20030720
  3. ZOLOFT [Concomitant]
  4. HYTRIN [Concomitant]
  5. IBUPROFEN [Concomitant]

REACTIONS (30)
  - ARTHRALGIA [None]
  - ASTHENIA [None]
  - BACK PAIN [None]
  - DECREASED ACTIVITY [None]
  - DIZZINESS [None]
  - DYSPNOEA [None]
  - DYSSTASIA [None]
  - FATIGUE [None]
  - FOOD INTOLERANCE [None]
  - HALLUCINATION, VISUAL [None]
  - HEADACHE [None]
  - HEART RATE INCREASED [None]
  - HOT FLUSH [None]
  - HYPERACUSIS [None]
  - HYPERAESTHESIA [None]
  - HYPERHIDROSIS [None]
  - HYPERSENSITIVITY [None]
  - MYALGIA [None]
  - NEUROPATHY [None]
  - NEUROPATHY PERIPHERAL [None]
  - PAIN [None]
  - PAIN IN EXTREMITY [None]
  - PARAESTHESIA [None]
  - PHOTOPHOBIA [None]
  - SEDATION [None]
  - SENSATION OF PRESSURE [None]
  - TENDON DISORDER [None]
  - TINNITUS [None]
  - VISION BLURRED [None]
  - VITREOUS FLOATERS [None]
